FAERS Safety Report 23906805 (Version 1)
Quarter: 2024Q2

REPORT INFORMATION
  Report Type: Spontaneous
  Country: CZ (occurrence: CZ)
  Receive Date: 20240528
  Receipt Date: 20240528
  Transmission Date: 20240716
  Serious: Yes (Other)
  Sender: FDA-Public Use
  Company Number: CZ-MEDO2008-000738

PATIENT
  Age: 57 Year
  Sex: Male

DRUGS (7)
  1. METFORMIN [Suspect]
     Active Substance: METFORMIN HYDROCHLORIDE
     Indication: Type 2 diabetes mellitus
     Dosage: INITIALLY 1000MG TWICE DAILY, THEN 850MG TWICE DAILY,.EMPAGLIFLOZIN WAS ADDED TO THE THERAPY IN FIXE
     Route: 065
  2. INSULIN GLARGINE [Concomitant]
     Active Substance: INSULIN GLARGINE
     Indication: Type 2 diabetes mellitus
     Dosage: 30 UNITS PER DAY
     Route: 065
  3. EMPAGLIFLOZIN [Concomitant]
     Active Substance: EMPAGLIFLOZIN
     Indication: Product used for unknown indication
     Dosage: WAS ADDED TO THE THERAPY IN FIXED THERAPY WITH METFORMIN
     Route: 065
  4. UNSPECIFIED INGREDIENT [Concomitant]
     Active Substance: UNSPECIFIED INGREDIENT
     Indication: Hypertension
     Dosage: UNK
     Route: 065
  5. EZETIMIBE [Concomitant]
     Active Substance: EZETIMIBE
     Indication: Dyslipidaemia
     Dosage: GRADUALLY ADDED TO ATORVASTATIN
     Route: 065
  6. ATORVASTATIN [Concomitant]
     Active Substance: ATORVASTATIN
     Indication: Dyslipidaemia
     Dosage: 40 MGGRADUALLY ADDED EZETIMIBE IN A FIXED COMBINATION
     Route: 065
  7. INSULIN NOS [Concomitant]
     Active Substance: INSULIN NOS
     Indication: Type 2 diabetes mellitus
     Dosage: 8-10 UNITS PER DAYDOES NOT USE THE FAST-ACTING ANALOGUE VERY OFTEN, OR USES IT MINIMALLY, BECAUSE OF
     Route: 065

REACTIONS (3)
  - Transient ischaemic attack [Unknown]
  - Renal failure [Unknown]
  - Hypoglycaemia [Unknown]
